FAERS Safety Report 8076792-X (Version None)
Quarter: 2012Q1

REPORT INFORMATION
  Report Type: 
  Country: None (occurrence: None)
  Receive Date: 20120127
  Receipt Date: 20120124
  Transmission Date: 20120608
  Serious: No
  Sender: FDA-Public Use
  Company Number: US-BAYER-2012-008710

PATIENT
  Age: 89 Year
  Sex: Male
  Weight: 98 kg

DRUGS (6)
  1. LASIX [Concomitant]
  2. VITAMIN E [Concomitant]
  3. FISH OIL [Concomitant]
  4. VITAMIN B-12 [Concomitant]
  5. ALEVE (CAPLET) [Suspect]
     Indication: MUSCLE STRAIN
  6. VITAMIN B COMPLEX CAP [Concomitant]

REACTIONS (1)
  - OEDEMA PERIPHERAL [None]
